FAERS Safety Report 9012175 (Version 1)
Quarter: 2013Q1

REPORT INFORMATION
  Report Type: Spontaneous
  Country: GB (occurrence: GB)
  Receive Date: 20130114
  Receipt Date: 20130114
  Transmission Date: 20140127
  Serious: Yes (Hospitalization)
  Sender: FDA-Public Use
  Company Number: GB-009507513-1011USA01755

PATIENT
  Age: 48 Year
  Sex: Female
  Weight: 66 kg

DRUGS (9)
  1. DEXAMETHASONE [Suspect]
     Indication: PLASMA CELL MYELOMA
     Dosage: 40 MG, QD
     Route: 048
     Dates: start: 20100730, end: 20100921
  2. VELCADE [Suspect]
     Indication: PLASMA CELL MYELOMA
     Dosage: 2.2 MG, QD
     Route: 042
     Dates: start: 20100730, end: 20100921
  3. ACYCLOVIR [Concomitant]
     Indication: HEPATITIS
  4. ALLOPURINOL [Concomitant]
  5. COLOXYL [Concomitant]
  6. ENTECAVIR [Concomitant]
     Indication: HEPATITIS
  7. LANSOPRAZOLE [Concomitant]
     Indication: PROPHYLAXIS
  8. ORAMORPH [Concomitant]
     Indication: PAIN
  9. SENNA [Concomitant]

REACTIONS (2)
  - Constipation [Not Recovered/Not Resolved]
  - Neutropenic sepsis [Recovered/Resolved]
